FAERS Safety Report 17899056 (Version 2)
Quarter: 2020Q3

REPORT INFORMATION
  Report Type: Report from Study
  Country: None (occurrence: US)
  Receive Date: 20200616
  Receipt Date: 20200813
  Transmission Date: 20201103
  Serious: Yes (Other)
  Sender: FDA-Public Use
  Company Number: US-ABBVIE-20P-163-3445462-00

PATIENT
  Sex: Female

DRUGS (1)
  1. IMBRUVICA [Suspect]
     Active Substance: IBRUTINIB
     Indication: CHRONIC LYMPHOCYTIC LEUKAEMIA
     Route: 048
     Dates: start: 20190304

REACTIONS (5)
  - Vitamin D increased [Unknown]
  - Fall [Unknown]
  - Wrist fracture [Unknown]
  - Palpitations [Recovered/Resolved]
  - Vitamin B12 increased [Unknown]
